FAERS Safety Report 10083892 (Version 1)
Quarter: 2014Q2

REPORT INFORMATION
  Report Type: Spontaneous
  Country: US (occurrence: None)
  Receive Date: 20140415
  Receipt Date: 20140415
  Transmission Date: 20141212
  Serious: Yes (Other)
  Sender: FDA-Public Use
  Company Number: 2014P1002973

PATIENT
  Sex: 0

DRUGS (2)
  1. METHYLPREDNISOLONE [Suspect]
     Indication: OPTIC NEURITIS
     Route: 048
  2. PREDNISOLONE [Suspect]
     Indication: OPTIC NEURITIS
     Route: 048

REACTIONS (2)
  - Detachment of retinal pigment epithelium [None]
  - Chorioretinopathy [None]
